FAERS Safety Report 7250635-6 (Version None)
Quarter: 2011Q1

REPORT INFORMATION
  Report Type: 
  Country: None (occurrence: None)
  Receive Date: 20110128
  Receipt Date: 20110125
  Transmission Date: 20110831
  Serious: Yes (Death, Other)
  Sender: FDA-Public Use
  Company Number: JP-JNJFOC-20101107489

PATIENT
  Sex: Male

DRUGS (10)
  1. CRAVIT [Suspect]
     Indication: PROSTATITIS
     Route: 048
  2. LEVOFLOXACIN [Suspect]
     Indication: ILL-DEFINED DISORDER
     Route: 041
  3. STAYBLA [Concomitant]
     Indication: HYPERTONIC BLADDER
     Route: 048
  4. CRESTOR [Concomitant]
     Indication: DYSLIPIDAEMIA
     Route: 048
  5. TAMSULOSIN HCL [Concomitant]
     Indication: BENIGN PROSTATIC HYPERPLASIA
     Route: 048
  6. DEPAS [Concomitant]
     Indication: INSOMNIA
     Route: 048
  7. PENTCILLIN [Concomitant]
     Route: 065
  8. MOBIC [Concomitant]
     Route: 065
  9. LENDORMIN [Concomitant]
     Indication: INSOMNIA
     Route: 048
  10. ROHYPNOL [Concomitant]
     Indication: INSOMNIA
     Route: 048

REACTIONS (5)
  - DIZZINESS [None]
  - PYREXIA [None]
  - FATIGUE [None]
  - INCORRECT DOSE ADMINISTERED [None]
  - MALAISE [None]
